FAERS Safety Report 12471693 (Version 1)
Quarter: 2016Q2

REPORT INFORMATION
  Report Type: Spontaneous
  Country: GB (occurrence: GB)
  Receive Date: 20160616
  Receipt Date: 20160616
  Transmission Date: 20160815
  Serious: Yes (Other)
  Sender: FDA-Public Use
  Company Number: GB-TEVA-667054ACC

PATIENT
  Age: 60 Year
  Sex: Female
  Weight: 90 kg

DRUGS (16)
  1. LEVOTHYROXINE. [Concomitant]
     Active Substance: LEVOTHYROXINE
     Dosage: 1 DOSAGE FORMS DAILY;
     Dates: start: 20150819
  2. MONTELUKAST [Concomitant]
     Active Substance: MONTELUKAST SODIUM
     Indication: WHEEZING
     Dosage: 1 DOSAGE FORMS DAILY; AT NIGHT TO PREVENT WHEEZING
     Dates: start: 20160526
  3. REPLENS [Concomitant]
     Active Substance: CARBOMER 934\GLYCERIN\METHYLPARABEN\PROPYLPARABEN\SODIUM HYDROXIDE
     Dosage: .3333 DOSAGE FORMS DAILY; USE ONCE EVERY 3 DAYS
     Dates: start: 20150819
  4. SERETIDE [Concomitant]
     Active Substance: FLUTICASONE PROPIONATE\SALMETEROL XINAFOATE
     Dosage: 4 DOSAGE FORMS DAILY;
     Route: 055
     Dates: start: 20150819
  5. ALENDRONIC ACID [Concomitant]
     Active Substance: ALENDRONIC ACID
     Dates: start: 20150819
  6. FLUTICASONE PROPIONATE. [Concomitant]
     Active Substance: FLUTICASONE PROPIONATE
     Dosage: 2 DOSAGE FORMS DAILY;
     Dates: start: 20150819
  7. PREDNISOLONE. [Suspect]
     Active Substance: PREDNISOLONE
     Dates: start: 20160526
  8. MEDROXYPROGESTERONE ACETATE. [Concomitant]
     Active Substance: MEDROXYPROGESTERONE ACETATE
     Dosage: 2 DOSAGE FORMS DAILY;
     Dates: start: 20150819
  9. ESTRIOL [Concomitant]
     Active Substance: ESTRIOL
     Dosage: APPLY AT NIGHT EVERY NIGHT FOR 2 WEEKS THEN TWICE WEEKLY FOR NEXT 3 WEEKS
     Dates: start: 20160523
  10. FLUOXETINE [Concomitant]
     Active Substance: FLUOXETINE HYDROCHLORIDE
     Dosage: 1 DOSAGE FORMS DAILY;
     Dates: start: 20150819, end: 20160428
  11. LANSOPRAZOLE. [Concomitant]
     Active Substance: LANSOPRAZOLE
     Dosage: 1 DOSAGE FORMS DAILY;
     Dates: start: 20150819
  12. NITROFURANTOIN. [Concomitant]
     Active Substance: NITROFURANTOIN
     Indication: PROPHYLAXIS
     Dosage: 1 DOSAGE FORMS DAILY; AT NIGHT TO PREVENT WATER INFECTIONS
     Dates: start: 20160428
  13. SALBUTAMOL [Concomitant]
     Active Substance: ALBUTEROL
     Dosage: FOUR TIMES A DAY
     Route: 055
     Dates: start: 20150819
  14. DESLORATADINE. [Concomitant]
     Active Substance: DESLORATADINE
     Dosage: 1 DOSAGE FORMS DAILY;
     Dates: start: 20150819
  15. SYSTANE (HYPROMELLOSE 2910 (4000 MPA.S)) [Concomitant]
     Active Substance: HYPROMELLOSE 2910 (4000 MPA.S)
     Dosage: USE AS DIRECTED
     Dates: start: 20151208
  16. VISCOTEARS [Concomitant]
     Active Substance: CARBOMER
     Dosage: ONE DROP
     Dates: start: 20151208

REACTIONS (3)
  - Psychotic behaviour [Recovered/Resolved]
  - Aggression [Unknown]
  - Irritability [Unknown]

NARRATIVE: CASE EVENT DATE: 20160526
